FAERS Safety Report 9241744 (Version 1)
Quarter: 2013Q2

REPORT INFORMATION
  Report Type: Spontaneous
  Country: FI (occurrence: FI)
  Receive Date: 20130419
  Receipt Date: 20130419
  Transmission Date: 20140414
  Serious: Yes (Hospitalization)
  Sender: FDA-Public Use
  Company Number: FI-ELI_LILLY_AND_COMPANY-FI201304003351

PATIENT
  Sex: Female

DRUGS (7)
  1. FORSTEO [Suspect]
     Indication: OSTEOPOROSIS
     Dosage: 20 UG, QD
     Dates: start: 20110804
  2. CALCIUM D [Concomitant]
     Indication: MEDICAL DIET
  3. SANDIMMUN [Concomitant]
  4. REVATIO [Concomitant]
  5. PANADOL                                 /SCH/ [Concomitant]
     Indication: PAIN
  6. MAREVAN [Concomitant]
     Indication: PROPHYLAXIS
  7. LANSOPRAZOLE [Concomitant]

REACTIONS (1)
  - Erysipelas [Recovered/Resolved]
